FAERS Safety Report 8477214 (Version 2)
Quarter: 2015Q2

REPORT INFORMATION
  Report Type: Spontaneous
  Country: BR (occurrence: BR)
  Receive Date: 20120327
  Receipt Date: 20150628
  Transmission Date: 20150821
  Serious: Yes (Other)
  Sender: FDA-Public Use
  Company Number: BR-AMGEN-BRASP2012017749

PATIENT
  Age: 50 Year
  Sex: Female
  Weight: 62 kg

DRUGS (8)
  1. PREDNISONE. [Concomitant]
     Active Substance: PREDNISONE
     Dosage: UNK
  2. OMEPRAZOLE. [Concomitant]
     Active Substance: OMEPRAZOLE
     Dosage: 20 MG, UNK
  3. CALCIUM [Concomitant]
     Active Substance: CALCIUM
     Dosage: UNK
  4. ENBREL [Suspect]
     Active Substance: ETANERCEPT
     Dosage: 50 MG, 1X/WEEK
     Route: 058
     Dates: start: 201201
  5. METHOTREXATE [Concomitant]
     Active Substance: METHOTREXATE
     Dosage: 12.5 MG, WEEKLY (5 TABLETS OF 2.5 MG, 1X/WEEK)
  6. ENBREL [Suspect]
     Active Substance: ETANERCEPT
     Indication: RHEUMATOID ARTHRITIS
     Dosage: UNK
     Route: 058
     Dates: start: 201004, end: 201112
  7. COLESTYRAMINE W/DICLOFENAC [Concomitant]
     Indication: PAIN
     Dosage: UNK
  8. DORFLEX [Concomitant]
     Active Substance: CAFFEINE\DIPYRONE\ORPHENADRINE
     Indication: PAIN
     Dosage: UNK

REACTIONS (8)
  - Arthritis [Not Recovered/Not Resolved]
  - Arthralgia [Not Recovered/Not Resolved]
  - Pain in extremity [Not Recovered/Not Resolved]
  - Swelling [Unknown]
  - Weight increased [Unknown]
  - Bone pain [Not Recovered/Not Resolved]
  - Injection site pain [Unknown]
  - Menopause [Unknown]

NARRATIVE: CASE EVENT DATE: 201109
